FAERS Safety Report 8063289-6 (Version None)
Quarter: 2012Q1

REPORT INFORMATION
  Report Type: 
  Country: None (occurrence: None)
  Receive Date: 20120123
  Receipt Date: 20120120
  Transmission Date: 20120608
  Serious: Yes (Death, Hospitalization)
  Sender: FDA-Public Use
  Company Number: PHHY2012TR005054

PATIENT
  Age: 24 Year
  Sex: Female

DRUGS (1)
  1. EXFORGE [Suspect]

REACTIONS (2)
  - SUICIDE ATTEMPT [None]
  - BRAIN DEATH [None]
